FAERS Safety Report 22047717 (Version 1)
Quarter: 2023Q1

REPORT INFORMATION
  Report Type: Report from Study
  Country: US (occurrence: US)
  Receive Date: 20230301
  Receipt Date: 20230301
  Transmission Date: 20230418
  Serious: Yes (Death, Other)
  Sender: FDA-Public Use
  Company Number: US-AUROBINDO-AUR-APL-2023-002479

PATIENT
  Age: 32 Year
  Sex: Female

DRUGS (7)
  1. CARBOPLATIN [Suspect]
     Active Substance: CARBOPLATIN
     Indication: Yolk sac tumour site unspecified
     Dosage: HIGH DOSE
     Route: 065
  2. BLEOMYCIN [Suspect]
     Active Substance: BLEOMYCIN SULFATE
     Indication: Yolk sac tumour site unspecified
     Dosage: UNK (FOUR CYCLES)
     Route: 065
  3. CISPLATIN [Suspect]
     Active Substance: CISPLATIN
     Indication: Yolk sac tumour site unspecified
     Dosage: UNK (FOUR CYCLES)
     Route: 065
  4. ETOPOSIDE [Suspect]
     Active Substance: ETOPOSIDE
     Indication: Yolk sac tumour site unspecified
     Dosage: UNK (FOUR CYCLES)
     Route: 065
  5. GEMCITABINE [Suspect]
     Active Substance: GEMCITABINE
     Indication: Yolk sac tumour site unspecified
     Dosage: UNK
     Route: 065
  6. PACLITAXEL [Suspect]
     Active Substance: PACLITAXEL
     Indication: Yolk sac tumour site unspecified
     Dosage: UNK
     Route: 065
  7. TAZEMETOSTAT [Suspect]
     Active Substance: TAZEMETOSTAT
     Indication: Yolk sac tumour site unspecified
     Dosage: UNK
     Route: 065

REACTIONS (1)
  - Drug ineffective [Fatal]
